FAERS Safety Report 24328830 (Version 2)
Quarter: 2024Q4

REPORT INFORMATION
  Report Type: Spontaneous
  Country: FR (occurrence: FR)
  Receive Date: 20240917
  Receipt Date: 20241121
  Transmission Date: 20250114
  Serious: Yes (Other)
  Sender: ALEXION PHARMACEUTICALS
  Company Number: None

PATIENT
  Age: 76 Year

DRUGS (1)
  1. IMFINZI [Suspect]
     Active Substance: DURVALUMAB
     Indication: Cholangiocarcinoma
     Dosage: 1500 MILLIGRAM, Q3W

REACTIONS (5)
  - Dactylitis [Not Recovered/Not Resolved]
  - Foreign body [Unknown]
  - Arthropathy [Unknown]
  - Osteoarthritis [Unknown]
  - Peripheral swelling [Unknown]
